FAERS Safety Report 4782468-4 (Version None)
Quarter: 2005Q3

REPORT INFORMATION
  Report Type: 
  Country: None (occurrence: None)
  Receive Date: 20050929
  Receipt Date: 20041130
  Transmission Date: 20060218
  Serious: Yes (Disabling)
  Sender: FDA-Public Use
  Company Number: 389529

PATIENT
  Age: 88 Year
  Sex: Female
  Weight: 64.1 kg

DRUGS (11)
  1. COREG [Suspect]
     Route: 048
  2. ALTACE [Concomitant]
     Dosage: 10MG PER DAY
     Route: 048
  3. CELEBREX [Concomitant]
     Dosage: 200MG TWICE PER DAY
     Route: 048
  4. FAMOTIDINE [Concomitant]
     Dosage: 10MG PER DAY
  5. FLEXERIL [Concomitant]
     Dosage: .5TAB TWICE PER DAY
  6. LASIX [Concomitant]
     Dosage: 20MG ALTERNATE DAYS
  7. LIPITOR [Concomitant]
     Dosage: 10MG AT NIGHT
  8. NITROGLYCERIN [Concomitant]
  9. POTASSIUM CHLORIDE [Concomitant]
     Dosage: 20MEQ ALTERNATE DAYS
  10. ZYRTEC [Concomitant]
     Dosage: 10MG PER DAY
  11. ASPIRIN [Concomitant]

REACTIONS (1)
  - VISION BLURRED [None]
